FAERS Safety Report 16526776 (Version 1)
Quarter: 2019Q3

REPORT INFORMATION
  Report Type: Spontaneous
  Country: US (occurrence: US)
  Receive Date: 20190704
  Receipt Date: 20190704
  Transmission Date: 20191004
  Serious: Yes (Disabling, Other)
  Sender: FDA-Public Use
  Company Number: US-TEVA-2019-US-1071615

PATIENT
  Age: 61 Year
  Sex: Male

DRUGS (1)
  1. LAMOTRIGINE. [Suspect]
     Active Substance: LAMOTRIGINE
     Indication: PARTIAL SEIZURES
     Route: 065

REACTIONS (15)
  - Nausea [Unknown]
  - Gait disturbance [Unknown]
  - Abdominal pain [Unknown]
  - Somnolence [Unknown]
  - Suicidal ideation [Unknown]
  - Balance disorder [Unknown]
  - Spinal fracture [Unknown]
  - Fatigue [Unknown]
  - Coeliac disease [Unknown]
  - Reaction to excipient [Unknown]
  - Seizure [Not Recovered/Not Resolved]
  - Drug intolerance [Unknown]
  - Depression [Unknown]
  - Peroneal nerve palsy [Unknown]
  - Foot prosthesis user [Unknown]
